FAERS Safety Report 4906312-7 (Version None)
Quarter: 2006Q1

REPORT INFORMATION
  Report Type: 
  Country: None (occurrence: None)
  Receive Date: 20060207
  Receipt Date: 20060125
  Transmission Date: 20060701
  Serious: Yes (Hospitalization)
  Sender: FDA-Public Use
  Company Number: 2006013759

PATIENT
  Age: 40 Year
  Sex: Male

DRUGS (1)
  1. PREGABALIN (PREGABALIN) [Suspect]
     Indication: PAIN
     Dosage: ORAL
     Route: 048

REACTIONS (2)
  - NEUTROPENIA [None]
  - PNEUMONIA [None]
